FAERS Safety Report 20309009 (Version 1)
Quarter: 2022Q1

REPORT INFORMATION
  Report Type: Spontaneous
  Country: CN (occurrence: CN)
  Receive Date: 20220107
  Receipt Date: 20220107
  Transmission Date: 20220424
  Serious: Yes (Other)
  Sender: FDA-Public Use
  Company Number: None

PATIENT
  Age: 52 Year
  Sex: Male
  Weight: 79 kg

DRUGS (3)
  1. OLANZAPINE [Suspect]
     Active Substance: OLANZAPINE
     Indication: Schizophrenia
     Dosage: 1GRAIN,QD
     Route: 048
     Dates: start: 20211202
  2. OLANZAPINE [Suspect]
     Active Substance: OLANZAPINE
     Dosage: INCREASED TO 2 GRAINS AT NIGHT ON 05-DEC-2021
     Route: 048
     Dates: start: 20211205, end: 20211213
  3. Compound Sodium Valproate And Valproic Acid Sr Tablets [Concomitant]
     Indication: Schizophrenia
     Dosage: 1GRAIN,QD
     Route: 048
     Dates: start: 20211202, end: 20211220

REACTIONS (1)
  - Extrapyramidal disorder [Recovered/Resolved]

NARRATIVE: CASE EVENT DATE: 20211213
